FAERS Safety Report 7028964-0 (Version None)
Quarter: 2010Q4

REPORT INFORMATION
  Report Type: 
  Country: None (occurrence: None)
  Receive Date: 20101005
  Receipt Date: 20100930
  Transmission Date: 20110411
  Serious: Yes (Hospitalization)
  Sender: FDA-Public Use
  Company Number: A0800537A

PATIENT
  Age: 68 Year
  Sex: Male

DRUGS (1)
  1. AVANDIA [Suspect]
     Dosage: 4MG PER DAY
     Route: 048

REACTIONS (5)
  - AMNESIA [None]
  - CARDIAC DISORDER [None]
  - DYSPNOEA [None]
  - LOSS OF CONSCIOUSNESS [None]
  - PAIN [None]
